FAERS Safety Report 7859609-5 (Version None)
Quarter: 2011Q4

REPORT INFORMATION
  Report Type: 
  Country: None (occurrence: None)
  Receive Date: 20111027
  Receipt Date: 20111021
  Transmission Date: 20120403
  Serious: Yes (Other)
  Sender: FDA-Public Use
  Company Number: CA-BAYER-2011-096391

PATIENT
  Sex: Female

DRUGS (2)
  1. CORTICOSTEROIDS [Suspect]
  2. BETASERON [Suspect]
     Dosage: UNK
     Route: 058
     Dates: end: 20090101

REACTIONS (2)
  - MYOCARDIAL INFARCTION [None]
  - OSTEONECROSIS [None]
